FAERS Safety Report 15997553 (Version 6)
Quarter: 2022Q4

REPORT INFORMATION
  Report Type: Report from Study
  Country: DE (occurrence: DE)
  Receive Date: 20190222
  Receipt Date: 20221020
  Transmission Date: 20230113
  Serious: Yes (Hospitalization, Other)
  Sender: FDA-Public Use
  Company Number: DE-TAKEDA-2019TUS005579

PATIENT
  Sex: Female

DRUGS (19)
  1. BRENTUXIMAB VEDOTIN [Suspect]
     Active Substance: BRENTUXIMAB VEDOTIN
     Indication: Hodgkin^s disease
     Dosage: 1.8 MILLIGRAM/KILOGRAM
     Route: 065
     Dates: start: 20190128
  2. BRENTUXIMAB VEDOTIN [Suspect]
     Active Substance: BRENTUXIMAB VEDOTIN
     Dosage: 1.8 MILLIGRAM/KILOGRAM
     Route: 065
     Dates: start: 20190222
  3. DOXORUBICIN [Suspect]
     Active Substance: DOXORUBICIN
     Indication: Hodgkin^s disease
     Dosage: 40 MILLIGRAM/SQ. METER
     Route: 065
     Dates: start: 20190129
  4. DOXORUBICIN [Suspect]
     Active Substance: DOXORUBICIN
     Dosage: 35 MILLIGRAM/SQ. METER
     Route: 065
     Dates: start: 20190223
  5. CYCLOPHOSPHAMIDE [Suspect]
     Active Substance: CYCLOPHOSPHAMIDE
     Indication: Hodgkin^s disease
     Dosage: 1100 MILLIGRAM/SQ. METER
     Route: 065
     Dates: start: 20190129
  6. CYCLOPHOSPHAMIDE [Suspect]
     Active Substance: CYCLOPHOSPHAMIDE
     Dosage: 650 MILLIGRAM/SQ. METER
     Route: 065
     Dates: start: 20190223
  7. DACARBAZINE [Suspect]
     Active Substance: DACARBAZINE
     Indication: Hodgkin^s disease
     Dosage: 250 MILLIGRAM/SQ. METER
     Route: 065
     Dates: start: 20190130
  8. DACARBAZINE [Suspect]
     Active Substance: DACARBAZINE
     Dosage: 250 MILLIGRAM/SQ. METER
     Route: 065
     Dates: start: 20190224
  9. DEXAMETHASONE [Suspect]
     Active Substance: DEXAMETHASONE
     Indication: Hodgkin^s disease
     Dosage: 40 MILLIGRAM
     Route: 065
     Dates: start: 20190129
  10. DEXAMETHASONE [Suspect]
     Active Substance: DEXAMETHASONE
     Dosage: 40 MILLIGRAM
     Route: 065
     Dates: start: 20190223
  11. ETOPOSIDE [Suspect]
     Active Substance: ETOPOSIDE
     Indication: Hodgkin^s disease
     Dosage: 125 MILLIGRAM/SQ. METER
     Route: 065
     Dates: start: 20190129
  12. ETOPOSIDE [Suspect]
     Active Substance: ETOPOSIDE
     Dosage: 100 MILLIGRAM/SQ. METER
     Route: 065
     Dates: start: 20190223
  13. SULFAMETHOXAZOLE\TRIMETHOPRIM [Concomitant]
     Active Substance: SULFAMETHOXAZOLE\TRIMETHOPRIM
     Dosage: 260 MILLIGRAM
     Route: 065
     Dates: start: 20190128
  14. SULFAMETHOXAZOLE\TRIMETHOPRIM [Concomitant]
     Active Substance: SULFAMETHOXAZOLE\TRIMETHOPRIM
     Dosage: 960 MILLIGRAM, QD
     Route: 065
     Dates: start: 20190222
  15. ACYCLOVIR                          /00587301/ [Concomitant]
     Dosage: 800 MILLIGRAM
     Route: 065
     Dates: start: 20190128
  16. ACYCLOVIR                          /00587301/ [Concomitant]
     Dosage: 800 MILLIGRAM, QD
     Route: 065
     Dates: start: 20190222
  17. ALLOPURINOL [Concomitant]
     Active Substance: ALLOPURINOL
     Dosage: 300 MILLIGRAM
     Route: 065
     Dates: start: 20190128
  18. AUGMENTIN                          /00756801/ [Concomitant]
     Dosage: UNK UNK, BID
     Route: 065
     Dates: start: 20190213, end: 20190218
  19. MEROPENEM [Concomitant]
     Active Substance: MEROPENEM
     Dosage: 1 GRAM
     Route: 042
     Dates: start: 20190228

REACTIONS (6)
  - Leukopenia [Recovered/Resolved]
  - Febrile neutropenia [Recovered/Resolved]
  - Anaemia [Not Recovered/Not Resolved]
  - Thrombocytopenia [Recovered/Resolved]
  - Infection [Recovered/Resolved]
  - Allergic transfusion reaction [Recovered/Resolved]

NARRATIVE: CASE EVENT DATE: 20190206
